FAERS Safety Report 10998194 (Version 3)
Quarter: 2015Q3

REPORT INFORMATION
  Report Type: Spontaneous
  Country: DE (occurrence: None)
  Receive Date: 20150406
  Receipt Date: 20150706
  Transmission Date: 20151125
  Serious: Yes (Hospitalization, Other)
  Sender: FDA-Public Use
  Company Number: ADR-2015-00639

PATIENT
  Sex: Male
  Weight: 57 kg

DRUGS (4)
  1. LIORESAL [Suspect]
     Active Substance: BACLOFEN
     Indication: MUSCLE SPASTICITY
     Dates: start: 200808
  2. NEXIUM [Concomitant]
     Active Substance: ESOMEPRAZOLE MAGNESIUM
  3. XUSAL (LEVOCETIRIZINE DIHYDROCHLORIDE) [Concomitant]
  4. LIORESAL [Suspect]
     Active Substance: BACLOFEN
     Indication: PRODUCT USED FOR UNKNOWN INDICATION

REACTIONS (14)
  - Mobility decreased [None]
  - Underdose [None]
  - Muscle spasms [None]
  - Device issue [None]
  - Catheter site inflammation [None]
  - Posture abnormal [None]
  - Infrequent bowel movements [None]
  - Drug withdrawal syndrome [None]
  - Tremor [None]
  - Dysphonia [None]
  - Overdose [None]
  - Stoma site reaction [None]
  - Fatigue [None]
  - Seizure [None]
